FAERS Safety Report 22186775 (Version 1)
Quarter: 2023Q2

REPORT INFORMATION
  Report Type: Spontaneous
  Country: FR (occurrence: FR)
  Receive Date: 20230407
  Receipt Date: 20230407
  Transmission Date: 20230722
  Serious: Yes (Life-Threatening, Hospitalization)
  Sender: FDA-Public Use
  Company Number: None

PATIENT
  Age: 45 Year
  Sex: Male
  Weight: 86 kg

DRUGS (5)
  1. ACETAMINOPHEN [Suspect]
     Active Substance: ACETAMINOPHEN
     Indication: Product used for unknown indication
     Dosage: UNK
     Route: 048
     Dates: start: 20230123, end: 20230203
  2. NIMODIPINE [Suspect]
     Active Substance: NIMODIPINE
     Indication: Product used for unknown indication
     Dosage: 12 DOSAGE FORM 1 TOTAL
     Route: 048
     Dates: start: 20230114, end: 20230203
  3. MILRINONE [Suspect]
     Active Substance: MILRINONE
     Indication: Product used for unknown indication
     Dosage: UNK PARENTERAL
     Route: 065
     Dates: start: 20230127, end: 20230202
  4. PROPRANOLOL [Suspect]
     Active Substance: PROPRANOLOL HYDROCHLORIDE
     Indication: Hypertension
     Dosage: UNK
     Route: 048
     Dates: start: 20230130, end: 20230202
  5. ENOXAPARIN SODIUM [Concomitant]
     Active Substance: ENOXAPARIN SODIUM
     Dosage: UNK PARENTERAL
     Route: 065
     Dates: start: 20230113

REACTIONS (1)
  - Agranulocytosis [Recovering/Resolving]

NARRATIVE: CASE EVENT DATE: 20230201
